FAERS Safety Report 6965498-3 (Version None)
Quarter: 2010Q3

REPORT INFORMATION
  Report Type: 
  Country: None (occurrence: None)
  Receive Date: 20100903
  Receipt Date: 20100826
  Transmission Date: 20110219
  Serious: Yes (Hospitalization)
  Sender: FDA-Public Use
  Company Number: US-JNJFOC-20100900221

PATIENT

DRUGS (4)
  1. CHILDREN'S MOTRIN [Suspect]
     Route: 048
  2. CHILDREN'S MOTRIN [Suspect]
     Indication: PYREXIA
     Route: 048
  3. CHILDREN'S BENADRYL ALLERGY [Suspect]
     Indication: SEASONAL ALLERGY
  4. ANTIBIOTICS [Suspect]
     Indication: NASOPHARYNGITIS

REACTIONS (6)
  - ABASIA [None]
  - OEDEMA PERIPHERAL [None]
  - PAIN [None]
  - PRODUCT QUALITY ISSUE [None]
  - PYREXIA [None]
  - RASH [None]
